FAERS Safety Report 7737908-5 (Version None)
Quarter: 2011Q3

REPORT INFORMATION
  Report Type: 
  Country: None (occurrence: None)
  Receive Date: 20110908
  Receipt Date: 20110905
  Transmission Date: 20111222
  Serious: Yes (Hospitalization)
  Sender: FDA-Public Use
  Company Number: PHHY2011DE73598

PATIENT
  Sex: Male

DRUGS (7)
  1. ZOMETA [Suspect]
     Indication: PROSTATE CANCER
     Dates: start: 20110201
  2. ACETYLSALICYLIC ACID SRT [Concomitant]
     Indication: HYPERTENSION
     Dosage: UNK UKN, UNK
     Route: 048
  3. BISOPROLOL FUMARATE [Concomitant]
     Dosage: UNK UKN, UNK
     Route: 048
  4. EPLERENONE [Concomitant]
     Dosage: UNK UKN, UNK
     Route: 048
  5. RAMIPRIL [Concomitant]
     Dosage: UNK UKN, UNK
     Route: 048
  6. ZOMETA [Suspect]
     Dates: start: 20110803
  7. ACETYLSALICYLIC ACID SRT [Concomitant]
     Indication: CORONARY ARTERY DISEASE

REACTIONS (2)
  - ISCHAEMIC CARDIOMYOPATHY [None]
  - CARDIAC FAILURE [None]
